FAERS Safety Report 11564653 (Version 2)
Quarter: 2015Q4

REPORT INFORMATION
  Report Type: Report from Study
  Country: US (occurrence: US)
  Receive Date: 20150928
  Receipt Date: 20151005
  Transmission Date: 20160304
  Serious: Yes (Other)
  Sender: FDA-Public Use
  Company Number: US-BAXALTA-2015BLT001888

PATIENT
  Age: 63 Year
  Sex: Female
  Weight: 54.8 kg

DRUGS (5)
  1. GAMMAGARD LIQUID [Suspect]
     Active Substance: HUMAN IMMUNOGLOBULIN G
     Dosage: 25 G, 1X A MONTH
     Route: 042
     Dates: start: 20150917, end: 20150917
  2. IBUPROFEN. [Concomitant]
     Active Substance: IBUPROFEN
     Indication: PREMEDICATION
     Dosage: 600 MG, ONCE
     Route: 048
     Dates: start: 20150917, end: 20150917
  3. GAMMAGARD LIQUID [Suspect]
     Active Substance: HUMAN IMMUNOGLOBULIN G
     Dosage: UNK
     Dates: start: 20150917, end: 20150917
  4. BENADRYL [Concomitant]
     Active Substance: DIPHENHYDRAMINE HYDROCHLORIDE
     Indication: PREMEDICATION
     Dosage: 25 MG, ONCE
     Route: 048
     Dates: start: 20150917, end: 20150917
  5. GAMMAGARD LIQUID [Suspect]
     Active Substance: HUMAN IMMUNOGLOBULIN G
     Indication: IMMUNODEFICIENCY COMMON VARIABLE
     Dosage: 25 G, 1X A MONTH
     Route: 042
     Dates: start: 2014

REACTIONS (9)
  - Concussion [Recovering/Resolving]
  - Fall [Recovered/Resolved]
  - Viral infection [Recovered/Resolved]
  - Blood sodium decreased [Unknown]
  - Dyspnoea [Recovered/Resolved]
  - White blood cell count increased [Unknown]
  - Heart rate increased [Recovered/Resolved]
  - Head injury [Recovering/Resolving]
  - Nausea [Recovered/Resolved]

NARRATIVE: CASE EVENT DATE: 20150917
